FAERS Safety Report 24900965 (Version 1)
Quarter: 2025Q1

REPORT INFORMATION
  Report Type: Spontaneous
  Country: US (occurrence: US)
  Receive Date: 20250129
  Receipt Date: 20250129
  Transmission Date: 20250408
  Serious: No
  Sender: PFIZER
  Company Number: US-PFIZER INC-PV202500011369

PATIENT
  Age: 51 Year
  Sex: Female

DRUGS (15)
  1. XELJANZ [Suspect]
     Active Substance: TOFACITINIB CITRATE
  2. LEVOTHYROXINE SODIUM [Concomitant]
     Active Substance: LEVOTHYROXINE SODIUM
  3. PREDNISONE [Concomitant]
     Active Substance: PREDNISONE
  4. RITUXAN [Concomitant]
     Active Substance: RITUXIMAB
  5. SULFASALAZINE [Concomitant]
     Active Substance: SULFASALAZINE
  6. OMEPRAZOLE [Concomitant]
     Active Substance: OMEPRAZOLE
  7. CYCLOBENZAPRINE [Concomitant]
     Active Substance: CYCLOBENZAPRINE
  8. LOSARTAN POTASSIUM [Concomitant]
     Active Substance: LOSARTAN POTASSIUM
  9. TRAMADOL [Concomitant]
     Active Substance: TRAMADOL
  10. METHOTREXATE [Concomitant]
     Active Substance: METHOTREXATE
  11. ENBREL [Concomitant]
     Active Substance: ETANERCEPT
  12. ORENCIA [Concomitant]
     Active Substance: ABATACEPT
  13. CIMZIA [Concomitant]
     Active Substance: CERTOLIZUMAB PEGOL
  14. RINVOQ [Concomitant]
     Active Substance: UPADACITINIB
  15. HYDROXYCHLOROQUINE [Concomitant]
     Active Substance: HYDROXYCHLOROQUINE

REACTIONS (1)
  - Drug ineffective [Unknown]
